FAERS Safety Report 4738521-4 (Version None)
Quarter: 2005Q3

REPORT INFORMATION
  Report Type: 
  Country: None (occurrence: None)
  Receive Date: 20050803
  Receipt Date: 20050727
  Transmission Date: 20060218
  Serious: Yes (Other)
  Sender: FDA-Public Use
  Company Number: AU_050708727

PATIENT
  Age: 15 Year
  Sex: Male
  Weight: 59 kg

DRUGS (4)
  1. STRATTERA [Suspect]
     Indication: LEARNING DISORDER
     Dosage: 25 MG/ 1 DAY
     Route: 048
     Dates: start: 20050124, end: 20050320
  2. VALPROIC ACID [Concomitant]
  3. CARBAMAZEPINE [Concomitant]
  4. LAMOTRIGINE [Concomitant]

REACTIONS (2)
  - CONDITION AGGRAVATED [None]
  - CONVULSION [None]
